FAERS Safety Report 4865710-0 (Version None)
Quarter: 2005Q4

REPORT INFORMATION
  Report Type: 
  Country: None (occurrence: None)
  Receive Date: 20051223
  Receipt Date: 20050908
  Transmission Date: 20060501
  Serious: Yes (Other)
  Sender: FDA-Public Use
  Company Number: HQWYE333609SEP05

PATIENT
  Sex: Female

DRUGS (21)
  1. ENBREL [Suspect]
     Indication: RHEUMATOID ARTHRITIS
     Route: 058
     Dates: start: 20050614, end: 20050913
  2. RHEUMATREX [Suspect]
     Route: 048
     Dates: start: 20050413
  3. RHEUMATREX [Suspect]
     Route: 048
     Dates: start: 20050420
  4. RHEUMATREX [Suspect]
     Route: 048
     Dates: start: 20050504, end: 20050629
  5. AZULFIDINE [Concomitant]
     Route: 048
     Dates: end: 20050622
  6. AZULFIDINE [Concomitant]
     Dates: start: 20050622, end: 20050630
  7. LOXONIN [Concomitant]
     Route: 065
  8. HALCION [Concomitant]
     Route: 065
     Dates: start: 20030601
  9. GASTER [Concomitant]
     Route: 065
     Dates: start: 20050319, end: 20050916
  10. PREDONINE [Concomitant]
     Route: 065
     Dates: start: 20050319
  11. SELBEX [Concomitant]
     Route: 065
     Dates: end: 20050916
  12. LANSOPRAZOLE [Concomitant]
     Route: 065
     Dates: start: 20050309
  13. FERROMIA [Concomitant]
     Route: 065
     Dates: start: 20050309
  14. GASMOTIN [Concomitant]
     Route: 065
     Dates: start: 20041112, end: 20050916
  15. POLAPREZINC [Concomitant]
     Route: 065
     Dates: start: 20050405, end: 20050629
  16. ENSURE [Concomitant]
     Route: 065
     Dates: start: 20030601
  17. FOLIAMIN [Concomitant]
     Route: 065
     Dates: start: 20050427, end: 20050707
  18. ETIZOLAM [Concomitant]
     Route: 065
     Dates: start: 20050525, end: 20050723
  19. VOLTAREN [Concomitant]
     Route: 065
     Dates: start: 20030601
  20. HERBAL SUPPLEMENT [Concomitant]
     Route: 065
     Dates: start: 20050405
  21. CARVEDILOL [Concomitant]

REACTIONS (5)
  - ALANINE AMINOTRANSFERASE INCREASED [None]
  - ASPARTATE AMINOTRANSFERASE INCREASED [None]
  - GAMMA-GLUTAMYLTRANSFERASE INCREASED [None]
  - HEPATIC FUNCTION ABNORMAL [None]
  - PARAESTHESIA [None]
